FAERS Safety Report 7972203 (Version 51)
Quarter: 2020Q4

REPORT INFORMATION
  Report Type: Spontaneous
  Country: CA (occurrence: CA)
  Receive Date: 20110602
  Receipt Date: 20201015
  Transmission Date: 20210114
  Serious: Yes (Hospitalization, Other)
  Sender: FDA-Public Use
  Company Number: CA-ROCHE-GNE319561

PATIENT
  Age: 44 Year
  Sex: Female
  Weight: 74 kg

DRUGS (38)
  1. XOLAIR [Suspect]
     Active Substance: OMALIZUMAB
     Route: 058
     Dates: start: 20150902
  2. SYMBICORT [Concomitant]
     Active Substance: BUDESONIDE\FORMOTEROL FUMARATE DIHYDRATE
     Indication: COUGH
     Dosage: BID
     Route: 065
  3. XOLAIR [Suspect]
     Active Substance: OMALIZUMAB
     Route: 058
     Dates: start: 20151118
  4. XOLAIR [Suspect]
     Active Substance: OMALIZUMAB
     Dosage: UNK
     Route: 058
     Dates: start: 20161206
  5. XOLAIR [Suspect]
     Active Substance: OMALIZUMAB
     Dosage: UNK
     Route: 058
     Dates: start: 20171013
  6. XOLAIR [Suspect]
     Active Substance: OMALIZUMAB
     Dosage: UNK
     Route: 058
     Dates: start: 20180323
  7. XOLAIR [Suspect]
     Active Substance: OMALIZUMAB
     Route: 058
     Dates: start: 20191009
  8. SYMBICORT [Concomitant]
     Active Substance: BUDESONIDE\FORMOTEROL FUMARATE DIHYDRATE
     Indication: CHEST DISCOMFORT
     Route: 065
  9. XOLAIR [Suspect]
     Active Substance: OMALIZUMAB
     Route: 058
     Dates: start: 20141016
  10. XOLAIR [Suspect]
     Active Substance: OMALIZUMAB
     Route: 058
     Dates: start: 20150806
  11. XOLAIR [Suspect]
     Active Substance: OMALIZUMAB
     Route: 058
     Dates: start: 20151215
  12. XOLAIR [Suspect]
     Active Substance: OMALIZUMAB
     Dosage: UNK
     Route: 058
     Dates: start: 20160912
  13. XOLAIR [Suspect]
     Active Substance: OMALIZUMAB
     Route: 058
  14. SYMBICORT [Concomitant]
     Active Substance: BUDESONIDE\FORMOTEROL FUMARATE DIHYDRATE
     Indication: DYSPNOEA
     Dosage: 2 DF (PUFFS), TID
     Route: 065
  15. VENTOLIN [Concomitant]
     Active Substance: ALBUTEROL SULFATE
     Indication: CHEST DISCOMFORT
     Route: 065
  16. XOLAIR [Suspect]
     Active Substance: OMALIZUMAB
     Route: 058
     Dates: start: 20130116
  17. XOLAIR [Suspect]
     Active Substance: OMALIZUMAB
     Dosage: UNK
     Route: 058
     Dates: start: 20161229
  18. XOLAIR [Suspect]
     Active Substance: OMALIZUMAB
     Dosage: UNK
     Route: 058
     Dates: start: 20180601
  19. XOLAIR [Suspect]
     Active Substance: OMALIZUMAB
     Route: 058
  20. XOLAIR [Suspect]
     Active Substance: OMALIZUMAB
     Route: 058
     Dates: start: 20190814
  21. SPIRIVA [Concomitant]
     Active Substance: TIOTROPIUM BROMIDE MONOHYDRATE
     Indication: PRODUCT USED FOR UNKNOWN INDICATION
     Dosage: UNK
     Route: 065
  22. SYMBICORT [Concomitant]
     Active Substance: BUDESONIDE\FORMOTEROL FUMARATE DIHYDRATE
     Indication: ASTHMA
     Route: 065
  23. SINGULAIR [Concomitant]
     Active Substance: MONTELUKAST SODIUM
     Route: 065
  24. VENTOLIN [Concomitant]
     Active Substance: ALBUTEROL SULFATE
     Indication: ASTHMA
     Dosage: BID
     Route: 065
  25. XOLAIR [Suspect]
     Active Substance: OMALIZUMAB
     Indication: ASTHMA
     Route: 058
     Dates: start: 20110406
  26. XOLAIR [Suspect]
     Active Substance: OMALIZUMAB
     Route: 058
  27. XOLAIR [Suspect]
     Active Substance: OMALIZUMAB
     Route: 058
  28. XOLAIR [Suspect]
     Active Substance: OMALIZUMAB
     Dosage: UNK
     Route: 058
     Dates: start: 20170331
  29. VENTOLIN [Concomitant]
     Active Substance: ALBUTEROL SULFATE
     Indication: COUGH
     Route: 065
  30. XOLAIR [Suspect]
     Active Substance: OMALIZUMAB
     Route: 058
     Dates: start: 20151015
  31. XOLAIR [Suspect]
     Active Substance: OMALIZUMAB
     Route: 058
     Dates: start: 20190315
  32. XOLAIR [Suspect]
     Active Substance: OMALIZUMAB
     Route: 058
     Dates: start: 20191120
  33. XOLAIR [Suspect]
     Active Substance: OMALIZUMAB
     Route: 058
     Dates: start: 20120524
  34. XOLAIR [Suspect]
     Active Substance: OMALIZUMAB
     Dosage: UNK
     Route: 058
     Dates: start: 20170216
  35. XOLAIR [Suspect]
     Active Substance: OMALIZUMAB
     Dosage: UNK
     Route: 058
     Dates: start: 20180511
  36. CARDIZEM [Concomitant]
     Active Substance: DILTIAZEM HYDROCHLORIDE
     Indication: PRODUCT USED FOR UNKNOWN INDICATION
     Dosage: UNK
     Route: 065
  37. SINGULAIR [Concomitant]
     Active Substance: MONTELUKAST SODIUM
     Indication: ASTHMA
     Dosage: UNK, QD
     Route: 065
  38. VENTOLIN [Concomitant]
     Active Substance: ALBUTEROL SULFATE
     Indication: DYSPNOEA
     Dosage: 2 PUFFS 3 TIMES A DAY
     Route: 065

REACTIONS (42)
  - Oropharyngeal pain [Recovering/Resolving]
  - Tooth abscess [Unknown]
  - Pharyngitis [Unknown]
  - Urticaria [Not Recovered/Not Resolved]
  - Scab [Recovering/Resolving]
  - Hypoventilation [Unknown]
  - Hypersensitivity [Recovering/Resolving]
  - Laryngitis [Unknown]
  - Nausea [Recovering/Resolving]
  - Abdominal discomfort [Unknown]
  - Headache [Recovering/Resolving]
  - Breast discomfort [Recovering/Resolving]
  - Dry throat [Recovering/Resolving]
  - Poor quality sleep [Recovering/Resolving]
  - Malaise [Recovering/Resolving]
  - Vitamin D decreased [Unknown]
  - Pigmentation disorder [Unknown]
  - Injection site swelling [Unknown]
  - Chest discomfort [Recovering/Resolving]
  - Lower respiratory tract infection [Unknown]
  - Viral infection [Unknown]
  - Arthralgia [Recovering/Resolving]
  - Weight decreased [Unknown]
  - Respiratory tract congestion [Unknown]
  - Sinusitis [Unknown]
  - Dyspnoea at rest [Recovering/Resolving]
  - Chest pain [Unknown]
  - Vertigo [Unknown]
  - Wheezing [Recovering/Resolving]
  - Inappropriate schedule of product administration [Unknown]
  - Blood pressure increased [Unknown]
  - Upper respiratory tract infection [Recovering/Resolving]
  - Fatigue [Recovering/Resolving]
  - Asthma [Recovered/Resolved]
  - Nasopharyngitis [Recovering/Resolving]
  - Alopecia [Recovering/Resolving]
  - Throat irritation [Recovering/Resolving]
  - Palpitations [Recovering/Resolving]
  - Oral herpes [Recovering/Resolving]
  - Dizziness [Recovering/Resolving]
  - Abdominal pain upper [Recovering/Resolving]
  - Cough [Recovering/Resolving]

NARRATIVE: CASE EVENT DATE: 20110406
